FAERS Safety Report 8054367-6 (Version None)
Quarter: 2012Q1

REPORT INFORMATION
  Report Type: 
  Country: None (occurrence: None)
  Receive Date: 20120118
  Receipt Date: 20120116
  Transmission Date: 20120608
  Serious: Yes (Other)
  Sender: FDA-Public Use
  Company Number: PHHY2011AU108780

PATIENT
  Sex: Female

DRUGS (5)
  1. VALPROATE SODIUM [Concomitant]
     Indication: EPILEPSY
  2. TEMAZEPAM [Concomitant]
     Indication: MUSCULOSKELETAL DISCOMFORT
  3. SEROQUEL [Concomitant]
     Indication: MUSCULOSKELETAL DISCOMFORT
  4. TRAMADOL HCL [Concomitant]
     Indication: MUSCULOSKELETAL DISCOMFORT
  5. TEGRETOL [Suspect]
     Indication: BIPOLAR DISORDER

REACTIONS (3)
  - CEREBROVASCULAR ACCIDENT [None]
  - SUICIDAL IDEATION [None]
  - NEUROTRANSMITTER LEVEL ALTERED [None]
